FAERS Safety Report 15276137 (Version 1)
Quarter: 2018Q3

REPORT INFORMATION
  Report Type: Spontaneous
  Country: US (occurrence: US)
  Receive Date: 20180728
  Receipt Date: 20180728
  Transmission Date: 20181010
  Serious: Yes (Life-Threatening, Hospitalization, Disabling)
  Sender: FDA-Public Use
  Company Number: None

PATIENT
  Age: 83 Year
  Sex: Female
  Weight: 54 kg

DRUGS (10)
  1. GOTU KOLA [Concomitant]
     Active Substance: GOTU KOLA
  2. CHAMOMILE [Concomitant]
     Active Substance: CHAMOMILE
  3. GARLIC. [Concomitant]
     Active Substance: GARLIC
  4. ASTRAGALUS [Concomitant]
  5. REISHI [Concomitant]
     Active Substance: REISHI
  6. HAWTHORN [Concomitant]
     Active Substance: CRATAEGUS LAEVIGATA FRUIT
  7. GINSENG [Concomitant]
     Active Substance: ASIAN GINSENG
  8. COQ10 [Concomitant]
     Active Substance: UBIDECARENONE
  9. ELIQUIS [Suspect]
     Active Substance: APIXABAN
     Indication: THROMBOSIS PROPHYLAXIS
     Dosage: ?          QUANTITY:1 TABLET(S);?
     Route: 048
     Dates: start: 20180222, end: 20180404
  10. GINGKO [Concomitant]
     Active Substance: GINKGO

REACTIONS (6)
  - Atrial fibrillation [None]
  - Weight decreased [None]
  - Bedridden [None]
  - Therapy change [None]
  - Heart rate increased [None]
  - Drug prescribing error [None]

NARRATIVE: CASE EVENT DATE: 20180222
